FAERS Safety Report 7091949-2 (Version None)
Quarter: 2010Q4

REPORT INFORMATION
  Report Type: 
  Country: None (occurrence: None)
  Receive Date: 20101109
  Receipt Date: 20101105
  Transmission Date: 20110411
  Serious: Yes (Death)
  Sender: FDA-Public Use
  Company Number: JP-GENENTECH-309192

PATIENT
  Age: 85 Year
  Sex: Male

DRUGS (6)
  1. ACTIVASE [Suspect]
     Indication: EMBOLIC STROKE
     Dosage: 29 ML, UNK
     Route: 042
     Dates: start: 20101011, end: 20101011
  2. RADICUT [Concomitant]
     Indication: PRODUCT USED FOR UNKNOWN INDICATION
     Dosage: 60 MG, UNK
     Route: 041
     Dates: start: 20101011, end: 20101014
  3. GLYCEOL [Concomitant]
     Indication: PRODUCT USED FOR UNKNOWN INDICATION
     Dosage: UNK
     Route: 041
     Dates: start: 20101012, end: 20101014
  4. HEPARIN [Concomitant]
     Indication: PRODUCT USED FOR UNKNOWN INDICATION
     Dosage: UNK
     Route: 041
     Dates: start: 20101013, end: 20101013
  5. WARFARIN POTASSIUM [Concomitant]
     Indication: PRODUCT USED FOR UNKNOWN INDICATION
     Dosage: UNK
     Route: 048
     Dates: start: 20101013
  6. ACE INHIBITOR (UNK INGREDIENTS) [Concomitant]
     Indication: PRODUCT USED FOR UNKNOWN INDICATION

REACTIONS (1)
  - BRAIN OEDEMA [None]
